FAERS Safety Report 8093179-4 (Version None)
Quarter: 2012Q1

REPORT INFORMATION
  Report Type: 
  Country: None (occurrence: None)
  Receive Date: 20120128
  Receipt Date: 20110914
  Transmission Date: 20120608
  Serious: Yes (Hospitalization)
  Sender: FDA-Public Use
  Company Number: US-ABBOTT-11P-163-0847913-00

PATIENT
  Sex: Male
  Weight: 90 kg

DRUGS (6)
  1. VITAMIN TAB [Concomitant]
     Indication: PRODUCT USED FOR UNKNOWN INDICATION
  2. LEVBID [Concomitant]
     Indication: PRODUCT USED FOR UNKNOWN INDICATION
  3. HUMIRA [Suspect]
     Indication: COLITIS ULCERATIVE
     Route: 058
     Dates: start: 20110112
  4. MERCAPTOPURINE [Suspect]
     Indication: PRODUCT USED FOR UNKNOWN INDICATION
  5. FE [Concomitant]
     Indication: PRODUCT USED FOR UNKNOWN INDICATION
  6. HERBS [Concomitant]
     Indication: PRODUCT USED FOR UNKNOWN INDICATION

REACTIONS (5)
  - ABDOMINAL DISTENSION [None]
  - FLATULENCE [None]
  - PANCREATIC DISORDER [None]
  - ABDOMINAL PAIN UPPER [None]
  - ERUCTATION [None]
